FAERS Safety Report 7318343-0 (Version None)
Quarter: 2011Q1

REPORT INFORMATION
  Report Type: 
  Country: None (occurrence: None)
  Receive Date: 20110218
  Receipt Date: 20110218
  Transmission Date: 20110831
  Serious: Yes (Hospitalization)
  Sender: FDA-Public Use
  Company Number: None

PATIENT
  Age: 67 Year
  Sex: Male

DRUGS (14)
  1. ALBUTEROL [Concomitant]
  2. LANTUS [Concomitant]
  3. COUMADIN [Suspect]
     Indication: ATRIAL FIBRILLATION
     Dosage: 5 MG DAILY PO CHRONIC
     Route: 048
  4. COUMADIN [Suspect]
     Indication: CORONARY ARTERY DISEASE
     Dosage: 5 MG DAILY PO CHRONIC
     Route: 048
  5. CARVEDILOL [Concomitant]
  6. POTASSIUM CHLORIDE [Concomitant]
  7. M.V.I. [Concomitant]
  8. FERROUS SULFATE TAB [Concomitant]
  9. OMEPRAZOLE [Concomitant]
  10. ASPIRIN [Suspect]
     Indication: ATRIAL FIBRILLATION
     Dosage: 325 MG DAILY PO CHRONIC
     Route: 048
  11. ASPIRIN [Suspect]
     Indication: CORONARY ARTERY DISEASE
     Dosage: 325 MG DAILY PO CHRONIC
     Route: 048
  12. SIMVASTATIN [Concomitant]
  13. BUMEX [Concomitant]
  14. VIT C [Concomitant]

REACTIONS (5)
  - BRADYCARDIA [None]
  - HYPOTENSION [None]
  - IRON DEFICIENCY ANAEMIA [None]
  - DUODENAL ULCER [None]
  - INTERNATIONAL NORMALISED RATIO INCREASED [None]
